FAERS Safety Report 11375631 (Version 2)
Quarter: 2016Q1

REPORT INFORMATION
  Report Type: Spontaneous
  Country: NL (occurrence: NL)
  Receive Date: 20150813
  Receipt Date: 20160217
  Transmission Date: 20160525
  Serious: Yes (Other)
  Sender: FDA-Public Use
  Company Number: NL-PFIZER INC-2015263673

PATIENT
  Sex: Male

DRUGS (1)
  1. XALATAN [Suspect]
     Active Substance: LATANOPROST
     Indication: EYE DISORDER
     Dosage: IN BOTH EYES, UNKNOWN
     Route: 047

REACTIONS (3)
  - Eye pain [Unknown]
  - Visual acuity reduced [Not Recovered/Not Resolved]
  - Macular oedema [Not Recovered/Not Resolved]
